FAERS Safety Report 9730372 (Version 1)
Quarter: 2013Q4

REPORT INFORMATION
  Report Type: Spontaneous
  Country: SE (occurrence: SE)
  Receive Date: 20131202
  Receipt Date: 20131202
  Transmission Date: 20140711
  Serious: Yes (Death, Other)
  Sender: FDA-Public Use
  Company Number: SE-ASTELLAS-2013EU010456

PATIENT
  Sex: Male

DRUGS (2)
  1. BETMIGA [Suspect]
     Indication: HYPERTONIC BLADDER
     Dosage: UNK
     Route: 048
     Dates: start: 20131022
  2. BETMIGA [Suspect]
     Indication: MICTURITION URGENCY

REACTIONS (2)
  - Sudden death [Fatal]
  - Urinary retention [Not Recovered/Not Resolved]
